FAERS Safety Report 4430813-1 (Version None)
Quarter: 2004Q3

REPORT INFORMATION
  Report Type: 
  Country: None (occurrence: None)
  Receive Date: 20040823
  Receipt Date: 20040727
  Transmission Date: 20050211
  Serious: Yes (Death, Hospitalization)
  Sender: FDA-Public Use
  Company Number: RO-AMGEN-UK084859

PATIENT
  Sex: Female

DRUGS (1)
  1. DARBEPOETIN ALFA [Suspect]
     Indication: ANAEMIA OF MALIGNANT DISEASE
     Route: 058
     Dates: start: 20040720, end: 20040720

REACTIONS (4)
  - CARDIO-RESPIRATORY ARREST [None]
  - DISEASE PROGRESSION [None]
  - NON-HODGKIN'S LYMPHOMA [None]
  - TUMOUR ASSOCIATED FEVER [None]
